FAERS Safety Report 6055476-3 (Version None)
Quarter: 2009Q1

REPORT INFORMATION
  Report Type: 
  Country: None (occurrence: None)
  Receive Date: 20090128
  Receipt Date: 20090119
  Transmission Date: 20090719
  Serious: Yes (Hospitalization)
  Sender: FDA-Public Use
  Company Number: US-JNJFOC-20090105381

PATIENT
  Age: 70 Year
  Sex: Female
  Weight: 88.45 kg

DRUGS (13)
  1. TYLENOL (CAPLET) [Suspect]
     Route: 048
  2. TYLENOL (CAPLET) [Suspect]
     Indication: ARTHRALGIA
     Dosage: 650-1300 MG AS NECESSARY
     Route: 048
  3. NORVASC [Concomitant]
     Indication: HYPERTENSION
  4. LASIX [Concomitant]
     Indication: DIURETIC THERAPY
  5. HYDRALIZINE [Concomitant]
     Indication: DIURETIC THERAPY
  6. LIPITOR [Concomitant]
     Indication: BLOOD CHOLESTEROL INCREASED
  7. LEXAPRO [Concomitant]
     Indication: ANXIETY
  8. GLIPIZIDE [Concomitant]
     Indication: TYPE 2 DIABETES MELLITUS
  9. OMEPRAZOLE [Concomitant]
     Indication: GASTROOESOPHAGEAL REFLUX DISEASE
  10. CARDURA [Concomitant]
     Indication: HYPERTENSION
  11. CLONAZEPAM [Concomitant]
     Indication: INSOMNIA
  12. CLONAZEPAM [Concomitant]
     Indication: ANXIETY
  13. FERROUS SULFATE TAB [Concomitant]
     Indication: ANAEMIA

REACTIONS (3)
  - HYPERCALCAEMIA [None]
  - PRODUCT QUALITY ISSUE [None]
  - RENAL DISORDER [None]
